FAERS Safety Report 11045363 (Version 2)
Quarter: 2015Q2

REPORT INFORMATION
  Report Type: Report from Study
  Country: CH (occurrence: CH)
  Receive Date: 20150417
  Receipt Date: 20150612
  Transmission Date: 20150821
  Serious: Yes (Congenital Anomaly)
  Sender: FDA-Public Use
  Company Number: CH-009507513-1504CHE015442

PATIENT

DRUGS (8)
  1. MIRTAZAPINE. [Suspect]
     Active Substance: MIRTAZAPINE
     Dosage: UNK
     Route: 064
  2. HEMP [Concomitant]
     Active Substance: HEMP
     Route: 064
  3. VENLAFAXINE HYDROCHLORIDE. [Concomitant]
     Active Substance: VENLAFAXINE HYDROCHLORIDE
     Route: 064
  4. LITHIUM. [Concomitant]
     Active Substance: LITHIUM
     Route: 064
  5. QUETIAPINE FUMARATE. [Concomitant]
     Active Substance: QUETIAPINE FUMARATE
     Route: 064
  6. DIAZEPAM. [Concomitant]
     Active Substance: DIAZEPAM
     Route: 064
  7. ZOPICLONE [Concomitant]
     Active Substance: ZOPICLONE
     Route: 064
  8. METFORMIN [Concomitant]
     Active Substance: METFORMIN HYDROCHLORIDE
     Route: 064

REACTIONS (4)
  - Coarctation of the aorta [Unknown]
  - Foetal exposure during pregnancy [Recovered/Resolved]
  - Ventricular septal defect [Unknown]
  - Maternal drugs affecting foetus [Recovered/Resolved]
